FAERS Safety Report 6383669-4 (Version None)
Quarter: 2009Q4

REPORT INFORMATION
  Report Type: 
  Country: None (occurrence: None)
  Receive Date: 20091001
  Receipt Date: 20090928
  Transmission Date: 20100525
  Serious: Yes (Other)
  Sender: FDA-Public Use
  Company Number: US-JNJFOC-20090704702

PATIENT
  Sex: Female
  Weight: 54.43 kg

DRUGS (20)
  1. FENTANYL TRANSDERMAL SYSTEM [Suspect]
     Route: 062
  2. FENTANYL TRANSDERMAL SYSTEM [Suspect]
     Indication: BACK PAIN
     Route: 062
  3. FENTANYL TRANSDERMAL SYSTEM [Suspect]
     Indication: BACK PAIN
     Route: 062
  4. LISINOPRIL AND HYDROCHLOROTHIAZIDE [Suspect]
     Dosage: 10/12.5 MG HALF TABLET DAILY
     Route: 048
  5. LISINOPRIL AND HYDROCHLOROTHIAZIDE [Suspect]
     Dosage: 10/12.5 MG
     Route: 048
  6. LISINOPRIL AND HYDROCHLOROTHIAZIDE [Suspect]
     Indication: BLOOD PRESSURE
     Dosage: 10/12.5 MG
     Route: 048
  7. LISINOPRIL [Suspect]
     Indication: BLOOD PRESSURE
     Route: 048
  8. PENTASA [Concomitant]
     Indication: CROHN'S DISEASE
     Dosage: 500 MG, 2 CAPSULES, 4 TIMES DAILY
     Route: 048
  9. DICYCLOMINE [Concomitant]
     Indication: CROHN'S DISEASE
     Route: 048
  10. OMEPRAZOLE [Concomitant]
     Indication: CROHN'S DISEASE
     Route: 048
  11. DETROL [Concomitant]
     Indication: URINARY INCONTINENCE
     Route: 048
  12. CYMBALTA [Concomitant]
     Dosage: DAILY IN THE EVENING
     Route: 048
  13. CYMBALTA [Concomitant]
     Indication: DEPRESSION
     Dosage: DAILY IN THE MORNING
     Route: 048
  14. TRAZODONE [Concomitant]
     Indication: SLEEP DISORDER
     Dosage: AT BEDTIME
     Route: 048
  15. LIPITOR [Concomitant]
     Indication: BLOOD CHOLESTEROL INCREASED
     Route: 048
  16. FEXOFENADINE [Concomitant]
     Indication: MULTIPLE ALLERGIES
     Route: 048
  17. SINGULAIR [Concomitant]
     Indication: MULTIPLE ALLERGIES
     Route: 048
  18. GLIMEPIRIDE [Concomitant]
     Indication: DIABETES MELLITUS
     Dosage: AS NEEDED
     Route: 048
  19. ACTOS [Concomitant]
     Indication: DIABETES MELLITUS
     Dosage: DAILY IN THE EVENING
     Route: 048
  20. KLONOPIN [Concomitant]
     Indication: ANXIETY
     Route: 048

REACTIONS (14)
  - APPLICATION SITE ERYTHEMA [None]
  - APPLICATION SITE PRURITUS [None]
  - CONFUSIONAL STATE [None]
  - CROHN'S DISEASE [None]
  - DEVICE LEAKAGE [None]
  - DIARRHOEA [None]
  - DIZZINESS [None]
  - DRUG DOSE OMISSION [None]
  - FATIGUE [None]
  - HYPERTENSION [None]
  - IRRITABILITY [None]
  - SEDATION [None]
  - SOMNOLENCE [None]
  - WRONG TECHNIQUE IN DRUG USAGE PROCESS [None]
